FAERS Safety Report 4892295-5 (Version None)
Quarter: 2006Q1

REPORT INFORMATION
  Report Type: 
  Country: None (occurrence: None)
  Receive Date: 20060125
  Receipt Date: 20060125
  Transmission Date: 20060701
  Serious: Yes (Hospitalization)
  Sender: FDA-Public Use
  Company Number: None

PATIENT
  Sex: Male

DRUGS (4)
  1. ENOXAPARIN SODIUM [Suspect]
     Indication: DEEP VEIN THROMBOSIS
     Dosage: 90MG, SQ, BID
     Route: 058
     Dates: start: 20050829, end: 20050904
  2. TOPROL [Concomitant]
  3. COZAAR [Concomitant]
  4. LIPITOR [Concomitant]

REACTIONS (4)
  - ECCHYMOSIS [None]
  - HEPARIN-INDUCED THROMBOCYTOPENIA [None]
  - OEDEMA PERIPHERAL [None]
  - PAIN IN EXTREMITY [None]
